FAERS Safety Report 5295010-9 (Version None)
Quarter: 2007Q1

REPORT INFORMATION
  Report Type: 
  Country: None (occurrence: None)
  Receive Date: 20070116
  Receipt Date: 20060821
  Transmission Date: 20070707
  Serious: Yes (Other)
  Sender: FDA-Public Use
  Company Number: HQWYE798422AUG06

PATIENT
  Sex: Female

DRUGS (1)
  1. PREMPRO [Suspect]
     Dosage: 0.3MG/1.5MG TABLET AT AN UNKNOWN FREQUENCY, ORAL
     Route: 048

REACTIONS (1)
  - BREAST CANCER [None]
